FAERS Safety Report 7827825-4 (Version None)
Quarter: 2011Q4

REPORT INFORMATION
  Report Type: 
  Country: None (occurrence: None)
  Receive Date: 20111020
  Receipt Date: 20111012
  Transmission Date: 20120403
  Serious: Yes (Other)
  Sender: FDA-Public Use
  Company Number: JP-BAYER-2011-098361

PATIENT
  Age: 67 Year
  Sex: Female

DRUGS (9)
  1. ATORVASTATIN CALCIUM [Concomitant]
     Route: 048
  2. PAROXETINE HCL [Concomitant]
     Route: 048
  3. LANSOPRAZOLE [Concomitant]
     Route: 048
  4. ALPRAZOLAM [Concomitant]
     Route: 048
  5. OLMESARTAN MEDOXOMIL [Concomitant]
     Route: 048
  6. ASPIRIN [Suspect]
     Route: 048
  7. TRAZODONE HYDROCHLORIDE [Concomitant]
     Route: 048
  8. AMLODIPINE [Concomitant]
     Route: 048
  9. FLUNITRAZEPAM [Concomitant]
     Route: 048

REACTIONS (1)
  - COLITIS MICROSCOPIC [None]
